FAERS Safety Report 9527813 (Version 1)
Quarter: 2013Q1

REPORT INFORMATION
  Report Type: Spontaneous
  Country: US (occurrence: None)
  Receive Date: 20130314
  Receipt Date: 20130314
  Transmission Date: 20140127
  Serious: Yes (Other)
  Sender: FDA-Public Use
  Company Number: 2013PROUSA02460

PATIENT
  Age: 89 Year
  Sex: Male
  Weight: 118.4 kg

DRUGS (4)
  1. PROVENGE [Suspect]
     Indication: PROSTATE CANCER METASTATIC
     Dosage: 250 ML, SINGLE, INTRAVENOUS
     Route: 042
     Dates: start: 20121210, end: 20121210
  2. CARVEDILOL (CARVEDILOL) [Concomitant]
  3. DYAZIDE (HYDROCHLOROTHIAZIE, TRIAMTERENE) [Concomitant]
  4. AMLODIPINE (AMLODIPINE)? [Concomitant]

REACTIONS (2)
  - Disease progression [None]
  - Oedema peripheral [None]
